FAERS Safety Report 21560599 (Version 1)
Quarter: 2022Q4

REPORT INFORMATION
  Report Type: Report from Study
  Country: US (occurrence: US)
  Receive Date: 20221107
  Receipt Date: 20221107
  Transmission Date: 20230113
  Serious: No
  Sender: FDA-Public Use
  Company Number: US-ABBVIE-4155274

PATIENT
  Sex: Male

DRUGS (5)
  1. RINVOQ [Suspect]
     Active Substance: UPADACITINIB
     Indication: Rheumatoid arthritis
     Dosage: ER?FORM STRENGTH: 15 MG?TAKING A 2 WEEK GAP?DAILY
     Route: 048
     Dates: start: 2020, end: 2022
  2. OYESTER SHELL CALCIUM [Concomitant]
     Indication: Product used for unknown indication
  3. Covid-19 vaccine [Concomitant]
     Indication: COVID-19 immunisation
     Route: 030
     Dates: start: 20220930, end: 20220930
  4. VITAMIN D3 [Concomitant]
     Active Substance: CHOLECALCIFEROL
     Indication: Product used for unknown indication
  5. IRON [Concomitant]
     Active Substance: IRON
     Indication: Product used for unknown indication
     Dosage: 236(27)MG TABLET
     Route: 048

REACTIONS (1)
  - Rheumatoid arthritis [Unknown]
